FAERS Safety Report 9252810 (Version 1)
Quarter: 2013Q2

REPORT INFORMATION
  Report Type: Spontaneous
  Country: US (occurrence: US)
  Receive Date: 20130424
  Receipt Date: 20130424
  Transmission Date: 20140414
  Serious: No
  Sender: FDA-Public Use
  Company Number: US-BAUSCH-BL-2012-001990

PATIENT
  Age: 66 Year
  Sex: Female

DRUGS (5)
  1. LOTEMAX (LOTEPREDNOL ETABONATE OPHTHALMIC SUSPENSION 0.5%) [Suspect]
     Indication: DRY EYE
     Dosage: ONE DROP IN EACH EYE TWICE DAILY
     Route: 047
     Dates: start: 20121018, end: 20121115
  2. LOTEMAX (LOTEPREDNOL ETABONATE OPHTHALMIC SUSPENSION 0.5%) [Suspect]
     Indication: OFF LABEL USE
  3. LOTEPREDNOL ETABONATE OPHTHALMIC OINTMENT 0.5% [Suspect]
     Indication: DRY EYE
     Dosage: ONE-FOURTH INCH RIBBON INTO BOTH EYES DAILY
     Route: 047
     Dates: start: 20121025, end: 20121120
  4. LOTEPREDNOL ETABONATE OPHTHALMIC OINTMENT 0.5% [Suspect]
     Indication: OFF LABEL USE
  5. CICLOSPORIN [Concomitant]

REACTIONS (4)
  - Eye pain [Unknown]
  - Eye pruritus [Unknown]
  - Eye irritation [Unknown]
  - Off label use [Unknown]
